FAERS Safety Report 20225144 (Version 1)
Quarter: 2021Q4

REPORT INFORMATION
  Report Type: Spontaneous
  Country: US (occurrence: None)
  Receive Date: 20211223
  Receipt Date: 20211223
  Transmission Date: 20220303
  Serious: No
  Sender: FDA-Public Use
  Company Number: 2021A857312

PATIENT
  Sex: Female
  Weight: 86.2 kg

DRUGS (2)
  1. FARXIGA [Suspect]
     Active Substance: DAPAGLIFLOZIN PROPANEDIOL
     Indication: Arrhythmia
     Dosage: SWALLOWS WITH WATER, STARTING YEAR AND FEW MONTHS AGO
     Route: 048
  2. FARXIGA [Suspect]
     Active Substance: DAPAGLIFLOZIN PROPANEDIOL
     Indication: Diabetes mellitus
     Dosage: SWALLOWS WITH WATER, STARTING YEAR AND FEW MONTHS AGO
     Route: 048

REACTIONS (2)
  - Feeling abnormal [Unknown]
  - Product packaging quantity issue [Unknown]
